FAERS Safety Report 6358438-1 (Version None)
Quarter: 2009Q3

REPORT INFORMATION
  Report Type: 
  Country: None (occurrence: None)
  Receive Date: 20090916
  Receipt Date: 20090904
  Transmission Date: 20100115
  Serious: Yes (Death, Hospitalization, Other)
  Sender: FDA-Public Use
  Company Number: PHHY2009JP28854

PATIENT
  Sex: Female

DRUGS (7)
  1. VOLTAREN [Suspect]
     Indication: PAIN
     Dosage: 25 MG, UP TO TWICE DAILY PRN
     Route: 054
     Dates: start: 20070913, end: 20090710
  2. VOLTAREN [Suspect]
     Indication: PAIN
     Dosage: UNK
     Route: 061
     Dates: start: 20070913, end: 20090710
  3. DEPAS [Suspect]
     Indication: PAIN
     Dosage: 0.5 MG, PRN
     Route: 048
     Dates: start: 20070913, end: 20090710
  4. MS ONSHIPPU [Concomitant]
     Indication: PAIN
     Dosage: UNK
     Route: 062
     Dates: start: 20070913, end: 20090710
  5. LEXOTAN [Concomitant]
     Indication: DEPRESSION
     Dosage: 6 MG, UNK
     Route: 048
     Dates: start: 20070913, end: 20090710
  6. MEILAX [Concomitant]
     Indication: DEPRESSION
     Dosage: 2 MG, UNK
     Route: 048
     Dates: start: 20070913, end: 20090710
  7. BRUFEN ^ABBOTT^ [Concomitant]
     Indication: HEADACHE
     Dosage: 300 MG, UNK
     Route: 049
     Dates: start: 20070913, end: 20090710

REACTIONS (33)
  - ALTERED STATE OF CONSCIOUSNESS [None]
  - ASTHENIA [None]
  - ATRIAL FIBRILLATION [None]
  - BLOOD GLUCOSE INCREASED [None]
  - CARDIOVASCULAR INSUFFICIENCY [None]
  - CARDIOVERSION [None]
  - CENTRAL VENOUS CATHETERISATION [None]
  - CHROMATURIA [None]
  - CONTINUOUS HAEMODIAFILTRATION [None]
  - CRUSH SYNDROME [None]
  - DECREASED APPETITE [None]
  - DEHYDRATION [None]
  - DISSEMINATED INTRAVASCULAR COAGULATION [None]
  - GASTRIC MUCOSAL LESION [None]
  - GASTROINTESTINAL ENDOSCOPIC THERAPY [None]
  - GASTROINTESTINAL HAEMORRHAGE [None]
  - HAEMODIALYSIS [None]
  - HEART RATE INCREASED [None]
  - HEPATIC ENZYME INCREASED [None]
  - HYPOTENSION [None]
  - HYPOVOLAEMIC SHOCK [None]
  - MULTI-ORGAN FAILURE [None]
  - OLIGURIA [None]
  - OVERDOSE [None]
  - OXYGEN SATURATION DECREASED [None]
  - PYREXIA [None]
  - RENAL FAILURE ACUTE [None]
  - RHABDOMYOLYSIS [None]
  - SEPSIS [None]
  - SHOCK [None]
  - SUPRAVENTRICULAR TACHYCARDIA [None]
  - TACHYCARDIA [None]
  - VENTRICULAR TACHYCARDIA [None]
